FAERS Safety Report 16998941 (Version 2)
Quarter: 2020Q1

REPORT INFORMATION
  Report Type: Spontaneous
  Country: US (occurrence: US)
  Receive Date: 20191106
  Receipt Date: 20200218
  Transmission Date: 20200409
  Serious: Yes (Other)
  Sender: FDA-Public Use
  Company Number: US-ASTRAZENECA-2019SF56411

PATIENT
  Age: 669 Month
  Sex: Male
  Weight: 77.1 kg

DRUGS (61)
  1. NEXIUM [Suspect]
     Active Substance: ESOMEPRAZOLE MAGNESIUM
     Indication: GASTROOESOPHAGEAL REFLUX DISEASE
     Route: 048
     Dates: start: 20121207
  2. ADRUCIL [Concomitant]
     Active Substance: FLUOROURACIL
  3. HYDROCODONE [Concomitant]
     Active Substance: HYDROCODONE
  4. SINGULAIR [Concomitant]
     Active Substance: MONTELUKAST SODIUM
  5. HYDROCORTISONE. [Concomitant]
     Active Substance: HYDROCORTISONE
  6. LIPITOR [Concomitant]
     Active Substance: ATORVASTATIN CALCIUM
  7. VIOXX [Concomitant]
     Active Substance: ROFECOXIB
  8. NEXIUM [Suspect]
     Active Substance: ESOMEPRAZOLE MAGNESIUM
     Indication: GASTROOESOPHAGEAL REFLUX DISEASE
     Route: 048
  9. NEXIUM [Suspect]
     Active Substance: ESOMEPRAZOLE MAGNESIUM
     Indication: GASTROOESOPHAGEAL REFLUX DISEASE
     Route: 048
     Dates: start: 20040324, end: 20040407
  10. ROLAIDS [Concomitant]
     Active Substance: CALCIUM CARBONATE\MAGNESIUM HYDROXIDE
     Dates: start: 2012
  11. SANDOSTATIN [Concomitant]
     Active Substance: OCTREOTIDE ACETATE
  12. TRICOR [Concomitant]
     Active Substance: FENOFIBRATE
  13. DICYCLOMINE [Concomitant]
     Active Substance: DICYCLOMINE HYDROCHLORIDE
  14. ATENOLOL. [Concomitant]
     Active Substance: ATENOLOL
  15. TRAZODONE [Concomitant]
     Active Substance: TRAZODONE HYDROCHLORIDE
  16. BUPRENORPHINE. [Concomitant]
     Active Substance: BUPRENORPHINE
  17. DICLOFENAC [Concomitant]
     Active Substance: DICLOFENAC
  18. PAROXETINE. [Concomitant]
     Active Substance: PAROXETINE
  19. NEXIUM [Suspect]
     Active Substance: ESOMEPRAZOLE MAGNESIUM
     Indication: GASTROOESOPHAGEAL REFLUX DISEASE
     Route: 048
     Dates: start: 20110201
  20. PROBIOTIC [Concomitant]
     Active Substance: PROBIOTICS NOS
     Indication: ROUTINE HEALTH MAINTENANCE
     Dates: start: 2015
  21. TUMS [Concomitant]
     Active Substance: CALCIUM CARBONATE
     Dates: start: 2012
  22. EPIRUBICIN [Concomitant]
     Active Substance: EPIRUBICIN
  23. PEGFILGRASTIM [Concomitant]
     Active Substance: PEGFILGRASTIM
  24. TYLENOL [Concomitant]
     Active Substance: ACETAMINOPHEN
  25. MEGESTROL [Concomitant]
     Active Substance: MEGESTROL
  26. PREVIDENT [Concomitant]
     Active Substance: SODIUM FLUORIDE
  27. METHOCARBAMOL. [Concomitant]
     Active Substance: METHOCARBAMOL
  28. NEXIUM [Suspect]
     Active Substance: ESOMEPRAZOLE MAGNESIUM
     Indication: GASTROOESOPHAGEAL REFLUX DISEASE
     Route: 048
     Dates: start: 20040324, end: 20110121
  29. SODIUM CHLORIDE. [Concomitant]
     Active Substance: SODIUM CHLORIDE
  30. ELOXATIN [Concomitant]
     Active Substance: OXALIPLATIN
  31. VITAMIN C [Concomitant]
     Active Substance: ASCORBIC ACID
  32. BACTRIM [Concomitant]
     Active Substance: SULFAMETHOXAZOLE\TRIMETHOPRIM
  33. CLARITIN [Concomitant]
     Active Substance: LORATADINE
  34. LEVAQUIN [Concomitant]
     Active Substance: LEVOFLOXACIN
  35. CRESTOR [Concomitant]
     Active Substance: ROSUVASTATIN CALCIUM
  36. SOMA [Concomitant]
     Active Substance: CARISOPRODOL
  37. MELATONIN [Concomitant]
     Active Substance: MELATONIN
  38. ALEVE [Concomitant]
     Active Substance: NAPROXEN SODIUM
  39. LIDOCAINE. [Concomitant]
     Active Substance: LIDOCAINE
  40. OXYCODONE [Concomitant]
     Active Substance: OXYCODONE
  41. AZELASTINE. [Concomitant]
     Active Substance: AZELASTINE HYDROCHLORIDE
  42. COREG [Concomitant]
     Active Substance: CARVEDILOL
  43. CENTRUM [Concomitant]
     Active Substance: VITAMINS
  44. ONDANSETRON [Concomitant]
     Active Substance: ONDANSETRON
  45. OMEPRAZOLE. [Concomitant]
     Active Substance: OMEPRAZOLE
     Route: 048
  46. ZINC. [Concomitant]
     Active Substance: ZINC
  47. VITAMIN B12 [Concomitant]
     Active Substance: CYANOCOBALAMIN
  48. MULTIVITAMIN [Concomitant]
     Active Substance: VITAMINS
     Indication: ROUTINE HEALTH MAINTENANCE
     Dates: start: 2015
  49. DEXTROSE. [Concomitant]
     Active Substance: DEXTROSE
  50. ZOFRAN [Concomitant]
     Active Substance: ONDANSETRON HYDROCHLORIDE
  51. LYRICA [Concomitant]
     Active Substance: PREGABALIN
  52. GENERLAC [Concomitant]
     Active Substance: LACTULOSE
  53. ERY TAB [Concomitant]
  54. NEXIUM [Suspect]
     Active Substance: ESOMEPRAZOLE MAGNESIUM
     Indication: GASTROOESOPHAGEAL REFLUX DISEASE
     Route: 048
     Dates: start: 2003, end: 2011
  55. IBUPROFEN. [Concomitant]
     Active Substance: IBUPROFEN
     Indication: PAIN
  56. CLINDAMYCIN. [Concomitant]
     Active Substance: CLINDAMYCIN
  57. MEGACE [Concomitant]
     Active Substance: MEGESTROL ACETATE
  58. BACLOFEN. [Concomitant]
     Active Substance: BACLOFEN
  59. BENTYL [Concomitant]
     Active Substance: DICYCLOMINE HYDROCHLORIDE
  60. CLARINEX [Concomitant]
     Active Substance: DESLORATADINE
  61. ALLEGRA [Concomitant]
     Active Substance: FEXOFENADINE HYDROCHLORIDE

REACTIONS (4)
  - Gastric cancer [Not Recovered/Not Resolved]
  - Gastric cancer stage III [Unknown]
  - Adenocarcinoma gastric [Unknown]
  - Signet-ring cell carcinoma [Unknown]

NARRATIVE: CASE EVENT DATE: 201205
